FAERS Safety Report 5236808-2 (Version None)
Quarter: 2007Q1

REPORT INFORMATION
  Report Type: 
  Country: None (occurrence: None)
  Receive Date: 20070213
  Receipt Date: 20070201
  Transmission Date: 20070707
  Serious: Yes (Hospitalization)
  Sender: FDA-Public Use
  Company Number: PHBS2004EC02784

PATIENT
  Age: 47 Year
  Sex: Male

DRUGS (1)
  1. VALSARTAN [Suspect]
     Dosage: 80 MG, QD
     Route: 048

REACTIONS (20)
  - ABDOMINAL PAIN [None]
  - ALANINE AMINOTRANSFERASE INCREASED [None]
  - ANOREXIA [None]
  - ASPARTATE AMINOTRANSFERASE INCREASED [None]
  - BILE DUCT STONE [None]
  - BILIRUBIN CONJUGATED INCREASED [None]
  - BLOOD ALKALINE PHOSPHATASE INCREASED [None]
  - BLOOD BILIRUBIN INCREASED [None]
  - CHOLECYSTECTOMY [None]
  - CHOLECYSTITIS ACUTE [None]
  - CHROMATURIA [None]
  - DYSPEPSIA [None]
  - FAECES DISCOLOURED [None]
  - HAEMATOCRIT DECREASED [None]
  - HAEMOGLOBIN DECREASED [None]
  - HEPATIC STEATOSIS [None]
  - HEPATITIS A VIRUS [None]
  - JAUNDICE [None]
  - MALAISE [None]
  - NAUSEA [None]
